FAERS Safety Report 15120987 (Version 1)
Quarter: 2018Q3

REPORT INFORMATION
  Report Type: Spontaneous
  Country: BE (occurrence: BE)
  Receive Date: 20180709
  Receipt Date: 20180709
  Transmission Date: 20181010
  Serious: Yes (Death, Other)
  Sender: FDA-Public Use
  Company Number: BE-009507513-1807BEL002543

PATIENT
  Sex: Female

DRUGS (1)
  1. REMERGON [Suspect]
     Active Substance: MIRTAZAPINE
     Dosage: 15 MG, UNK
     Route: 048

REACTIONS (8)
  - Agitation [Unknown]
  - Restless legs syndrome [Unknown]
  - Seizure [Unknown]
  - Aneurysm ruptured [Fatal]
  - Diabetes mellitus [Unknown]
  - Abnormal dreams [Unknown]
  - Pyrexia [Unknown]
  - Anxiety [Unknown]

NARRATIVE: CASE EVENT DATE: 2017
